FAERS Safety Report 6607083-9 (Version None)
Quarter: 2010Q1

REPORT INFORMATION
  Report Type: 
  Country: None (occurrence: None)
  Receive Date: 20100219
  Receipt Date: 20100204
  Transmission Date: 20100710
  Serious: Yes (Other)
  Sender: FDA-Public Use
  Company Number: TRP_06789_2010

PATIENT
  Sex: Male

DRUGS (5)
  1. INFERGEN [Suspect]
     Indication: HEPATITIS C
     Dosage: 12 UG QD, SUBCUTANEOUS
     Route: 058
     Dates: start: 20091001
  2. RIBAVIRIN [Suspect]
     Dosage: DF,
     Dates: start: 20091001
  3. INTERFERON [Suspect]
     Indication: HEPATITIS C
     Dosage: DF,
  4. PEG-INTERFERON [Suspect]
     Indication: HEPATITIS C
     Dosage: DF
  5. NEUPOGEN [Suspect]
     Indication: NEUTROPENIA
     Dosage: DF

REACTIONS (13)
  - ANAEMIA [None]
  - CHRONIC HEPATIC FAILURE [None]
  - COMPLICATIONS OF TRANSPLANTED LIVER [None]
  - DECREASED IMMUNE RESPONSIVENESS [None]
  - DRUG INEFFECTIVE [None]
  - HEPATIC NEOPLASM MALIGNANT [None]
  - HEPATITIS C [None]
  - LIVER TRANSPLANT [None]
  - NEUTROPENIA [None]
  - PLATELET COUNT DECREASED [None]
  - THERAPEUTIC RESPONSE DECREASED [None]
  - UNEVALUABLE EVENT [None]
  - WHITE BLOOD CELL COUNT DECREASED [None]
